FAERS Safety Report 6147558-2 (Version None)
Quarter: 2009Q2

REPORT INFORMATION
  Report Type: 
  Country: None (occurrence: None)
  Receive Date: 20090408
  Receipt Date: 20090205
  Transmission Date: 20091009
  Serious: No
  Sender: FDA-Public Use
  Company Number: US-BAYER-200910108BCC

PATIENT
  Age: 86 Year
  Sex: Female
  Weight: 55 kg

DRUGS (3)
  1. ALEVE [Suspect]
     Indication: SCIATICA
     Dosage: TOTAL DAILY DOSE: 440  MG  UNIT DOSE: 220 MG
     Dates: start: 20090109
  2. ALEVE [Suspect]
     Dosage: TOTAL DAILY DOSE: 220 MG  UNIT DOSE: 220 MG
     Dates: start: 20090205
  3. ASPIRIN [Concomitant]

REACTIONS (1)
  - SCIATICA [None]
